FAERS Safety Report 6636525-8 (Version None)
Quarter: 2010Q1

REPORT INFORMATION
  Report Type: 
  Country: None (occurrence: None)
  Receive Date: 20100311
  Receipt Date: 20100301
  Transmission Date: 20100710
  Serious: Yes (Other)
  Sender: FDA-Public Use
  Company Number: 524982

PATIENT
  Age: 16 Year
  Sex: Male

DRUGS (9)
  1. ETOPOSIDE [Suspect]
     Indication: EWING'S SARCOMA
  2. IRINOTECAN HYDROCHLORIDE [Suspect]
     Indication: EWING'S SARCOMA
  3. VINCRISTINE SULFATE [Suspect]
     Indication: EWING'S SARCOMA
  4. RUBITECAN [Suspect]
     Indication: EWING'S SARCOMA
     Dosage: INHALATION
     Route: 055
  5. BEVACIZUMAB [Suspect]
     Indication: EWING'S SARCOMA
  6. CYCLOPHOSPHAMIDE [Suspect]
     Indication: EWING'S SARCOMA
  7. DOXORUBICIN HCL [Suspect]
     Indication: EWING'S SARCOMA
  8. IFOSFAMIDE [Suspect]
     Indication: EWING'S SARCOMA
  9. TEMOZOLOMIDE [Suspect]
     Indication: EWING'S SARCOMA

REACTIONS (3)
  - ACUTE MYELOID LEUKAEMIA [None]
  - DISEASE COMPLICATION [None]
  - MYELODYSPLASTIC SYNDROME [None]
